FAERS Safety Report 4960099-0 (Version None)
Quarter: 2006Q1

REPORT INFORMATION
  Report Type: 
  Country: None (occurrence: None)
  Receive Date: 20060331
  Receipt Date: 20060220
  Transmission Date: 20060701
  Serious: Yes (Hospitalization)
  Sender: FDA-Public Use
  Company Number: US-MERCK-0602USA04991

PATIENT
  Age: 78 Year
  Sex: Female
  Weight: 62 kg

DRUGS (8)
  1. VIOXX [Suspect]
     Indication: ARTHRITIS
     Route: 048
     Dates: start: 20010717, end: 20031201
  2. VIOXX [Suspect]
     Route: 048
     Dates: start: 20020414, end: 20020420
  3. VIOXX [Suspect]
     Indication: OSTEOARTHRITIS
     Route: 048
     Dates: start: 20010717, end: 20031201
  4. VIOXX [Suspect]
     Route: 048
     Dates: start: 20020414, end: 20020420
  5. PREMPRO [Concomitant]
     Route: 065
  6. ELAVIL [Concomitant]
     Route: 065
  7. GLUCOSAMINE [Concomitant]
     Route: 065
  8. CRESTOR [Concomitant]
     Route: 065

REACTIONS (33)
  - ABDOMINAL DISTENSION [None]
  - ANAEMIA [None]
  - APHASIA [None]
  - BACK PAIN [None]
  - BRONCHITIS [None]
  - BUNION [None]
  - BURSITIS [None]
  - CARDIOVASCULAR DISORDER [None]
  - CEREBROVASCULAR ACCIDENT [None]
  - CHRONIC SINUSITIS [None]
  - DEPRESSION [None]
  - DIZZINESS [None]
  - FATIGUE [None]
  - GAIT DISTURBANCE [None]
  - GASTROENTERITIS VIRAL [None]
  - GASTROOESOPHAGEAL REFLUX DISEASE [None]
  - HEADACHE [None]
  - HYPERGLYCAEMIA [None]
  - HYPERKERATOSIS [None]
  - HYPERLIPIDAEMIA [None]
  - HYPERTENSION [None]
  - INCREASED TENDENCY TO BRUISE [None]
  - INSOMNIA [None]
  - LACUNAR INFARCTION [None]
  - MYALGIA [None]
  - OEDEMA PERIPHERAL [None]
  - PEPTIC ULCER HAEMORRHAGE [None]
  - PERIPHERAL VASCULAR DISORDER [None]
  - RASH [None]
  - RHINITIS ALLERGIC [None]
  - TRANSIENT ISCHAEMIC ATTACK [None]
  - URGE INCONTINENCE [None]
  - VENTRICULAR HYPERTROPHY [None]
